FAERS Safety Report 9669344 (Version 4)
Quarter: 2017Q2

REPORT INFORMATION
  Report Type: Spontaneous
  Country: US (occurrence: US)
  Receive Date: 20131105
  Receipt Date: 20170413
  Transmission Date: 20170830
  Serious: Yes (Hospitalization, Other)
  Sender: FDA-Public Use
  Company Number: US-PFIZER INC-2013312721

PATIENT
  Age: 67 Year
  Sex: Female

DRUGS (2)
  1. VANCOMYCIN HCL [Suspect]
     Active Substance: VANCOMYCIN HYDROCHLORIDE
     Indication: CELLULITIS
     Dosage: UNK
     Route: 042
  2. CLINDAMYCIN PHOSPHATE. [Suspect]
     Active Substance: CLINDAMYCIN PHOSPHATE
     Indication: CELLULITIS
     Dosage: UNK
     Route: 042

REACTIONS (2)
  - Acute generalised exanthematous pustulosis [Recovering/Resolving]
  - Multi-organ disorder [Recovering/Resolving]
